FAERS Safety Report 12457242 (Version 6)
Quarter: 2016Q3

REPORT INFORMATION
  Report Type: Report from Study
  Country: US (occurrence: US)
  Receive Date: 20160610
  Receipt Date: 20160810
  Transmission Date: 20161109
  Serious: Yes (Death, Hospitalization)
  Sender: FDA-Public Use
  Company Number: US-ACTELION-A-US2016-136838

PATIENT
  Age: 64 Year
  Sex: Male

DRUGS (4)
  1. OXYGEN. [Concomitant]
     Active Substance: OXYGEN
  2. VENTAVIS [Suspect]
     Active Substance: ILOPROST
     Dosage: 2.5 MCG, 6-9X/DAY
     Route: 055
     Dates: start: 20160519, end: 20160727
  3. VENTAVIS [Suspect]
     Active Substance: ILOPROST
     Indication: PULMONARY ARTERIAL HYPERTENSION
     Dosage: 5 MCG, 6-9X/DAY
     Route: 055
     Dates: start: 20160513
  4. VENTAVIS [Suspect]
     Active Substance: ILOPROST
     Dosage: 2.5 MCG, Q 2-3 HOURS
     Route: 055

REACTIONS (8)
  - Dyspnoea [Unknown]
  - Pulmonary arterial hypertension [Fatal]
  - Drug hypersensitivity [Unknown]
  - Pulmonary fibrosis [Fatal]
  - Ventilation perfusion mismatch [Recovering/Resolving]
  - Oxygen consumption increased [Recovering/Resolving]
  - Tension [Unknown]
  - Disease progression [Fatal]
